FAERS Safety Report 25331313 (Version 1)
Quarter: 2025Q2

REPORT INFORMATION
  Report Type: Report from Study
  Country: PH (occurrence: PH)
  Receive Date: 20250519
  Receipt Date: 20250519
  Transmission Date: 20250716
  Serious: Yes (Death)
  Sender: OTSUKA
  Company Number: PH-MMM-Otsuka-G37TCOHD

PATIENT

DRUGS (1)
  1. TOLVAPTAN [Suspect]
     Active Substance: TOLVAPTAN
     Indication: Cardiac failure
     Dosage: 0.5 DF, BID (HALF TABLET 2 TIMES A DAY)
     Route: 048

REACTIONS (4)
  - Cardiac disorder [Fatal]
  - Liver disorder [Fatal]
  - Wrong technique in product usage process [Unknown]
  - Inappropriate schedule of product administration [Unknown]
